FAERS Safety Report 5911933-9 (Version None)
Quarter: 2008Q4

REPORT INFORMATION
  Report Type: 
  Country: None (occurrence: None)
  Receive Date: 20081008
  Receipt Date: 20080930
  Transmission Date: 20090506
  Serious: Yes (Hospitalization, Other)
  Sender: FDA-Public Use
  Company Number: PHHY2008FR19185

PATIENT
  Sex: Male

DRUGS (5)
  1. LOPRESSOR [Suspect]
     Dosage: 0.5 DF, QD
  2. FRAXIPARIN [Suspect]
     Indication: DIALYSIS
     Dosage: 2850 IU, TIW
  3. CALCIPRAT [Suspect]
     Dosage: 750 MG, BID
     Route: 048
  4. DAFALGAN [Suspect]
     Dosage: 500 MG, TID
     Route: 048
  5. KAYEXALATE [Suspect]
     Dosage: 15 G, QD
     Route: 048

REACTIONS (3)
  - ABDOMINAL PAIN [None]
  - HAEMOLYSIS [None]
  - HYPERTENSION [None]
